FAERS Safety Report 11825685 (Version 1)
Quarter: 2015Q4

REPORT INFORMATION
  Report Type: Spontaneous
  Country: US (occurrence: US)
  Receive Date: 20151211
  Receipt Date: 20151211
  Transmission Date: 20160305
  Serious: No
  Sender: FDA-Public Use
  Company Number: US-JNJFOC-20150712217

PATIENT
  Age: 61 Year
  Sex: Male

DRUGS (1)
  1. IMBRUVICA [Suspect]
     Active Substance: IBRUTINIB
     Indication: LYMPHOMA
     Route: 048
     Dates: start: 20150424

REACTIONS (6)
  - Dry mouth [Unknown]
  - Myalgia [Unknown]
  - Stomatitis [Unknown]
  - Fatigue [Unknown]
  - Irritability [Unknown]
  - Off label use [Unknown]

NARRATIVE: CASE EVENT DATE: 2015
